FAERS Safety Report 6477343-3 (Version None)
Quarter: 2009Q4

REPORT INFORMATION
  Report Type: 
  Country: None (occurrence: None)
  Receive Date: 20091207
  Receipt Date: 20091124
  Transmission Date: 20100525
  Serious: Yes (Hospitalization)
  Sender: FDA-Public Use
  Company Number: FR-ELI_LILLY_AND_COMPANY-FR200911006486

PATIENT
  Sex: Male
  Weight: 74 kg

DRUGS (6)
  1. GEMCITABINE HCL [Suspect]
     Indication: NON-SMALL CELL LUNG CANCER
     Dosage: 2375 MG, OTHER
     Route: 042
     Dates: start: 20071123, end: 20080131
  2. CISPLATIN [Suspect]
     Indication: NON-SMALL CELL LUNG CANCER
     Dosage: 152 MG, OTHER
     Route: 042
     Dates: start: 20071123, end: 20080124
  3. PEMETREXED [Suspect]
     Indication: NON-SMALL CELL LUNG CANCER
     Dosage: 970 MG, UNK
     Route: 042
     Dates: start: 20080616
  4. FOLIC ACID [Concomitant]
     Indication: VITAMIN SUPPLEMENTATION
  5. VITAMIN B-12 [Concomitant]
     Indication: VITAMIN SUPPLEMENTATION
  6. DEXAMETHASONE TAB [Concomitant]
     Indication: PROPHYLAXIS

REACTIONS (3)
  - FEBRILE NEUTROPENIA [None]
  - INFECTION [None]
  - THROMBOPHLEBITIS SUPERFICIAL [None]
